FAERS Safety Report 4780940-4 (Version None)
Quarter: 2005Q3

REPORT INFORMATION
  Report Type: 
  Country: None (occurrence: None)
  Receive Date: 20050927
  Receipt Date: 20050927
  Transmission Date: 20060218
  Serious: Yes (Hospitalization)
  Sender: FDA-Public Use
  Company Number: None

PATIENT
  Sex: Male
  Weight: 67.4 kg

DRUGS (10)
  1. GEFITINIB 750MG TABS, ASTRAZENECA [Suspect]
     Indication: GLIOBLASTOMA MULTIFORME
     Dosage: 1500 MG PO, QD
     Route: 048
     Dates: start: 20050215
  2. RAPAMUNE [Suspect]
     Indication: GLIOBLASTOMA MULTIFORME
     Dosage: 10 MG PO QD
     Route: 048
     Dates: start: 20050215
  3. AVALIDE [Concomitant]
  4. DECADRON [Concomitant]
  5. KEPPRA [Concomitant]
  6. PEPCID [Concomitant]
  7. LOVENOX [Concomitant]
  8. MAGIC MOUTHWASH [Concomitant]
  9. PHENERGAN [Concomitant]
  10. ZOFRAN [Concomitant]

REACTIONS (7)
  - CONVULSION [None]
  - FALL [None]
  - HEMIPARESIS [None]
  - HYPOKALAEMIA [None]
  - LABORATORY TEST ABNORMAL [None]
  - LETHARGY [None]
  - SPEECH DISORDER [None]
